FAERS Safety Report 21774525 (Version 2)
Quarter: 2023Q1

REPORT INFORMATION
  Report Type: Other
  Country: AU (occurrence: None)
  Receive Date: 20221224
  Receipt Date: 20230327
  Transmission Date: 20230417
  Serious: Yes (Other)
  Sender: FDA-Public Use
  Company Number: AU-ROCHE-3249413

PATIENT
  Age: 38 Year
  Sex: Male

DRUGS (3)
  1. TOCILIZUMAB [Suspect]
     Active Substance: TOCILIZUMAB
     Indication: Multisystem inflammatory syndrome
     Route: 042
  2. PREDNISOLONE [Suspect]
     Active Substance: PREDNISOLONE
     Indication: Multisystem inflammatory syndrome
     Route: 048
  3. METHYLPREDNISOLONE SODIUM SUCCINATE [Suspect]
     Active Substance: METHYLPREDNISOLONE SODIUM SUCCINATE
     Indication: Multisystem inflammatory syndrome
     Route: 042

REACTIONS (4)
  - Condition aggravated [Recovering/Resolving]
  - Cytomegalovirus viraemia [Recovering/Resolving]
  - Multisystem inflammatory syndrome [Recovering/Resolving]
  - Off label use [Unknown]
